FAERS Safety Report 4936576-5 (Version None)
Quarter: 2006Q1

REPORT INFORMATION
  Report Type: 
  Country: None (occurrence: None)
  Receive Date: 20060302
  Receipt Date: 20060206
  Transmission Date: 20060701
  Serious: Yes (Hospitalization, Other)
  Sender: FDA-Public Use
  Company Number: US_0510123037

PATIENT
  Age: 50 Year
  Sex: Male
  Weight: 110.9 kg

DRUGS (6)
  1. ZYPREXA [Suspect]
     Dosage: 25 MG, EACH EVENING, ORAL
     Route: 048
     Dates: start: 19971101
  2. BENZTROPINE MESYLATE [Concomitant]
  3. PROPRANOLOL [Concomitant]
  4. SERTRALINE [Concomitant]
  5. VITAMIN E [Concomitant]
  6. VALPROIC ACID [Concomitant]

REACTIONS (5)
  - BLOOD UREA INCREASED [None]
  - DIABETES MELLITUS NON-INSULIN-DEPENDENT [None]
  - GLAUCOMA [None]
  - HOMICIDAL IDEATION [None]
  - WEIGHT INCREASED [None]
